FAERS Safety Report 17360818 (Version 1)
Quarter: 2020Q1

REPORT INFORMATION
  Report Type: Other
  Country: IT (occurrence: IT)
  Receive Date: 20200203
  Receipt Date: 20200203
  Transmission Date: 20200409
  Serious: Yes (Other)
  Sender: FDA-Public Use
  Company Number: IT-CELLTRION INC.-2020IT018385

PATIENT

DRUGS (1)
  1. RITUXIMAB (UNKNOWN) [Suspect]
     Active Substance: RITUXIMAB
     Indication: LYMPHOMA
     Dosage: 545 MICROGRAM
     Route: 041
     Dates: start: 20191214, end: 20191214

REACTIONS (3)
  - Bronchostenosis [Recovered/Resolved]
  - Dyspnoea [Recovered/Resolved]
  - Underdose [Unknown]

NARRATIVE: CASE EVENT DATE: 20191214
